FAERS Safety Report 5845896-1 (Version None)
Quarter: 2008Q3

REPORT INFORMATION
  Report Type: 
  Country: None (occurrence: None)
  Receive Date: 20080814
  Receipt Date: 20080806
  Transmission Date: 20090109
  Serious: Yes (Other)
  Sender: FDA-Public Use
  Company Number: JP-ELI_LILLY_AND_COMPANY-JP200807004769

PATIENT
  Sex: Female
  Weight: 66 kg

DRUGS (15)
  1. HUMALOG [Suspect]
     Indication: DIABETES MELLITUS
     Dosage: 20 U, UNK
     Route: 058
     Dates: start: 20040210, end: 20041012
  2. HUMALOG [Suspect]
     Dosage: 40 U, UNK
     Route: 058
     Dates: start: 20041102, end: 20071223
  3. HUMALOG [Suspect]
     Indication: DIABETES MELLITUS
     Dosage: 90 U, UNK
     Route: 058
     Dates: start: 20070313, end: 20070527
  4. LANTUS [Concomitant]
     Indication: DIABETES MELLITUS
     Dosage: 95 U, UNK
     Route: 058
     Dates: start: 20040224, end: 20080226
  5. NOVOLIN R [Concomitant]
     Indication: DIABETES MELLITUS
     Dosage: 20 U, UNK
     Route: 058
     Dates: start: 20041019, end: 20041102
  6. NOVOLIN N [Concomitant]
     Indication: DIABETES MELLITUS
     Dosage: 6 U, UNK
     Route: 058
     Dates: start: 20050215, end: 20050616
  7. NOVOLIN N [Concomitant]
     Dosage: 115 U, UNK
     Route: 058
     Dates: start: 20070703
  8. NOVORAPID [Concomitant]
     Indication: DIABETES MELLITUS
     Dosage: 90 U, UNK
     Route: 058
     Dates: start: 20061219, end: 20070313
  9. NOVORAPID [Concomitant]
     Dosage: 115 U, UNK
     Route: 058
     Dates: start: 20070516
  10. LEVEMIR [Concomitant]
     Indication: DIABETES MELLITUS
     Dosage: 100 U, UNK
     Route: 058
     Dates: start: 20080226, end: 20080318
  11. GLYBURIDE [Concomitant]
     Dosage: 1.25 MG, UNK
     Route: 048
     Dates: start: 20060822, end: 20060905
  12. AMARYL [Concomitant]
     Dosage: 1 MG, DAILY (1/D)
     Route: 048
     Dates: start: 20070919
  13. AMARYL [Concomitant]
     Dosage: 2 MG, DAILY (1/D)
     Route: 048
  14. AMARYL [Concomitant]
     Dosage: 3 MG, DAILY (1/D)
     Route: 048
     Dates: end: 20071218
  15. ACTOS [Concomitant]
     Dosage: 15 MG, DAILY (1/D)
     Route: 048
     Dates: start: 20061121, end: 20070417

REACTIONS (7)
  - ANTI-INSULIN ANTIBODY INCREASED [None]
  - DRUG HYPERSENSITIVITY [None]
  - GLYCOSYLATED HAEMOGLOBIN INCREASED [None]
  - INSULIN RESISTANCE [None]
  - MALAISE [None]
  - NAUSEA [None]
  - OEDEMA [None]
